FAERS Safety Report 24905621 (Version 1)
Quarter: 2025Q1

REPORT INFORMATION
  Report Type: Report from Study
  Country: US (occurrence: US)
  Receive Date: 20250130
  Receipt Date: 20250130
  Transmission Date: 20250409
  Serious: No
  Sender: HRA PHARMA
  Company Number: US-ORG100014127-2024000117

PATIENT
  Age: 76 Year
  Sex: Female

DRUGS (19)
  1. METOPIRONE [Suspect]
     Active Substance: METYRAPONE
     Indication: Adrenal gland cancer
     Route: 048
     Dates: start: 20240320
  2. ASPIRIN LOW TAB 81MG EC; [Concomitant]
     Indication: Product use in unapproved indication
  3. atorvastatin tab 10mg [Concomitant]
     Indication: Product use in unapproved indication
  4. Bystolic tab 20mg [Concomitant]
     Indication: Product use in unapproved indication
  5. clonidine tab 0.1mg [Concomitant]
     Indication: Product use in unapproved indication
  6. FUROSEMIDE [Concomitant]
     Active Substance: FUROSEMIDE
     Indication: Product use in unapproved indication
  7. Klor-Con m20 tab 20meq ER [Concomitant]
     Indication: Product use in unapproved indication
  8. Latisse sol 0.03% [Concomitant]
     Indication: Product use in unapproved indication
  9. LEVOTHYROXIN TAB 112MCG [Concomitant]
     Indication: Product use in unapproved indication
  10. LIDOCAINE AND PRILOCAINE [Concomitant]
     Active Substance: LIDOCAINE\PRILOCAINE
     Indication: Product use in unapproved indication
  11. liothyronine tab 5mcg [Concomitant]
     Indication: Product use in unapproved indication
  12. LORAZEPAM [Concomitant]
     Active Substance: LORAZEPAM
     Indication: Product use in unapproved indication
  13. Magonate liq 1000/5ml [Concomitant]
     Indication: Product use in unapproved indication
  14. minoxidil tab 10mg [Concomitant]
     Indication: Product use in unapproved indication
  15. ondansetron tab 8mg ODT [Concomitant]
     Indication: Product use in unapproved indication
  16. pantoprazole tab 40mg [Concomitant]
     Indication: Product use in unapproved indication
  17. Restasis Mul Emu 0.05%; [Concomitant]
     Indication: Product use in unapproved indication
  18. SPIRONOLACTONE [Concomitant]
     Active Substance: SPIRONOLACTONE
     Indication: Product use in unapproved indication
  19. zolpidem tab 10mg [Concomitant]
     Indication: Product use in unapproved indication

REACTIONS (2)
  - Oedema [Not Recovered/Not Resolved]
  - Off label use [Not Recovered/Not Resolved]

NARRATIVE: CASE EVENT DATE: 20240320
